FAERS Safety Report 14804171 (Version 2)
Quarter: 2018Q2

REPORT INFORMATION
  Report Type: Spontaneous
  Country: US (occurrence: US)
  Receive Date: 20180425
  Receipt Date: 20180611
  Transmission Date: 20180711
  Serious: Yes (Life-Threatening)
  Sender: FDA-Public Use
  Company Number: US-GLENMARK PHARMACEUTICALS-2018GMK034572

PATIENT

DRUGS (1)
  1. NORETHINDRONE AND ETHINYL ESTRADIOL TABLETS USP, 0.5 MG/0.0025 MG [Suspect]
     Active Substance: ETHINYL ESTRADIOL\NORETHINDRONE ACETATE
     Indication: HOT FLUSH
     Dosage: 1 DF, OD
     Route: 048
     Dates: end: 20180410

REACTIONS (2)
  - Concomitant disease aggravated [Recovered/Resolved]
  - Coeliac disease [Recovered/Resolved]
